FAERS Safety Report 15600725 (Version 1)
Quarter: 2018Q4

REPORT INFORMATION
  Report Type: Spontaneous
  Country: US (occurrence: US)
  Receive Date: 20181109
  Receipt Date: 20181109
  Transmission Date: 20190205
  Serious: Yes (Life-Threatening, Hospitalization, Other)
  Sender: FDA-Public Use
  Company Number: US-HIKMA PHARMACEUTICALS USA INC.-US-H14001-18-08201

PATIENT
  Age: 83 Year
  Sex: Male

DRUGS (8)
  1. DOXAZOSIN [Concomitant]
     Active Substance: DOXAZOSIN\DOXAZOSIN MESYLATE
     Indication: BLOOD PRESSURE MANAGEMENT
     Dosage: ()
     Route: 065
  2. LIDOCAINE. [Interacting]
     Active Substance: LIDOCAINE
     Indication: PROCEDURAL PAIN
     Dosage: LEFT IN PLACE FOR 12 OUT OF EVERY 24 H PER THE MANUFACTURER?S RECOMMENDATIONS ()
     Route: 062
  3. BUMETANIDE. [Concomitant]
     Active Substance: BUMETANIDE
     Indication: BLOOD PRESSURE MANAGEMENT
     Dosage: ()
     Route: 065
  4. AMLODIPINE [Concomitant]
     Active Substance: AMLODIPINE BESYLATE
     Indication: BLOOD PRESSURE MANAGEMENT
     Dosage: ()
     Route: 065
  5. METOPROLOL. [Concomitant]
     Active Substance: METOPROLOL
     Indication: BLOOD PRESSURE MANAGEMENT
     Dosage: ()
     Route: 065
  6. ISOSORBIDE DINITRATE. [Suspect]
     Active Substance: ISOSORBIDE DINITRATE
     Indication: BLOOD PRESSURE MANAGEMENT
     Dosage: IN TOTAL
     Route: 065
  7. PARACETAMOL [Concomitant]
     Active Substance: ACETAMINOPHEN
     Indication: PROCEDURAL PAIN
     Dosage: ()
     Route: 065
  8. QUETIAPINE. [Concomitant]
     Active Substance: QUETIAPINE
     Indication: DELIRIUM
     Dosage: ()
     Route: 065

REACTIONS (5)
  - Orthostatic hypotension [Recovering/Resolving]
  - Methaemoglobinaemia [Recovering/Resolving]
  - Delirium [Recovered/Resolved]
  - Hypoxia [Recovering/Resolving]
  - Drug interaction [Recovered/Resolved]
